FAERS Safety Report 16455971 (Version 1)
Quarter: 2019Q2

REPORT INFORMATION
  Report Type: Spontaneous
  Country: CN (occurrence: CN)
  Receive Date: 20190620
  Receipt Date: 20190620
  Transmission Date: 20190711
  Serious: Yes (Other)
  Sender: FDA-Public Use
  Company Number: CN-VIIV HEALTHCARE LIMITED-CN2019APC108940

PATIENT

DRUGS (1)
  1. HEPTODIN [Suspect]
     Active Substance: LAMIVUDINE
     Indication: CHRONIC HEPATITIS B
     Dosage: 7-8 YEARS AGO
     Route: 048
     Dates: start: 2013

REACTIONS (3)
  - Foetal death [Unknown]
  - Drug exposure before pregnancy [Unknown]
  - Exposure during pregnancy [Unknown]

NARRATIVE: CASE EVENT DATE: 201904
